FAERS Safety Report 7947922-2 (Version None)
Quarter: 2011Q4

REPORT INFORMATION
  Report Type: 
  Country: None (occurrence: None)
  Receive Date: 20111121
  Receipt Date: 20111115
  Transmission Date: 20120403
  Serious: Yes (Hospitalization, Other)
  Sender: FDA-Public Use
  Company Number: 2010SP019147

PATIENT
  Age: 24 Year
  Sex: Female
  Weight: 89.8122 kg

DRUGS (4)
  1. ADDERALL 5 [Concomitant]
  2. NUVARING [Suspect]
     Indication: CONTRACEPTION
     Dosage: ; VAG
     Dates: start: 20041001, end: 20051201
  3. NUVARING [Suspect]
     Indication: CONTRACEPTION
     Dosage: ; VAG
     Dates: start: 20060208, end: 20080417
  4. NUVARING [Suspect]
     Indication: CONTRACEPTION
     Dosage: ; VAG
     Dates: start: 20090105, end: 20090831

REACTIONS (32)
  - HEADACHE [None]
  - DEMYELINATION [None]
  - LIGAMENT SPRAIN [None]
  - FATIGUE [None]
  - FALL [None]
  - CEREBROVASCULAR ACCIDENT [None]
  - VISION BLURRED [None]
  - CEREBRAL THROMBOSIS [None]
  - ACNE [None]
  - DERMAL CYST [None]
  - DEPRESSION [None]
  - ALCOHOL ABUSE [None]
  - COMPLICATED MIGRAINE [None]
  - SELF-MEDICATION [None]
  - VISUAL IMPAIRMENT [None]
  - CEREBROVASCULAR DISORDER [None]
  - VISUAL ACUITY REDUCED [None]
  - BINGE DRINKING [None]
  - BRONCHITIS [None]
  - BRAIN INJURY [None]
  - MIGRAINE WITH AURA [None]
  - VISUAL FIELD DEFECT [None]
  - VASCULITIS CEREBRAL [None]
  - INSOMNIA [None]
  - PAPILLOEDEMA [None]
  - WEIGHT DECREASED [None]
  - BIPOLAR DISORDER [None]
  - NASAL CONGESTION [None]
  - CEREBRAL ISCHAEMIA [None]
  - LIBIDO DECREASED [None]
  - BREAST CYST [None]
  - ATTENTION DEFICIT/HYPERACTIVITY DISORDER [None]
